FAERS Safety Report 7017552-8 (Version None)
Quarter: 2010Q3

REPORT INFORMATION
  Report Type: 
  Country: None (occurrence: None)
  Receive Date: 20100928
  Receipt Date: 20100713
  Transmission Date: 20110219
  Serious: No
  Sender: FDA-Public Use
  Company Number: US-MYLANLABS-2010S1012694

PATIENT
  Age: 50 Year
  Sex: Female
  Weight: 102.06 kg

DRUGS (1)
  1. SPIRONOLACTONE TABLETS, USP [Suspect]
     Route: 048
     Dates: start: 20090601

REACTIONS (1)
  - DYSGEUSIA [None]
